FAERS Safety Report 5720356-7 (Version None)
Quarter: 2008Q2

REPORT INFORMATION
  Report Type: 
  Country: None (occurrence: None)
  Receive Date: 20080428
  Receipt Date: 20080416
  Transmission Date: 20081010
  Serious: Yes (Life-Threatening)
  Sender: FDA-Public Use
  Company Number: FR-PFIZER INC-2008033723

PATIENT
  Sex: Female
  Weight: 107 kg

DRUGS (7)
  1. ALDACTONE [Suspect]
     Route: 048
  2. DIFFU K [Interacting]
     Route: 048
  3. CARDENSIEL [Interacting]
  4. AMIODARONE HCL [Interacting]
  5. ATORVASTATIN CALCIUM [Concomitant]
  6. LASILIX [Concomitant]
  7. PREVISCAN [Concomitant]

REACTIONS (7)
  - ATRIOVENTRICULAR BLOCK COMPLETE [None]
  - BLOOD CREATINE INCREASED [None]
  - BLOOD SODIUM DECREASED [None]
  - DRUG INTERACTION [None]
  - HYPERKALAEMIA [None]
  - MALAISE [None]
  - SYNCOPE [None]
